FAERS Safety Report 6545064-4 (Version None)
Quarter: 2010Q1

REPORT INFORMATION
  Report Type: 
  Country: None (occurrence: None)
  Receive Date: 20100121
  Receipt Date: 20100119
  Transmission Date: 20100710
  Serious: Yes (Death)
  Sender: FDA-Public Use
  Company Number: D0066103A

PATIENT
  Sex: Male
  Weight: 92.5 kg

DRUGS (2)
  1. PANDEMRIX H1N1 [Suspect]
     Indication: PROPHYLAXIS
     Route: 065
  2. AMOXICILLIN [Suspect]
     Indication: PROPHYLAXIS
     Route: 065
     Dates: start: 20091120

REACTIONS (4)
  - ANAPHYLACTIC SHOCK [None]
  - DYSPNOEA [None]
  - RASH [None]
  - SWOLLEN TONGUE [None]
